FAERS Safety Report 6887451-0 (Version None)
Quarter: 2010Q3

REPORT INFORMATION
  Report Type: 
  Country: None (occurrence: None)
  Receive Date: 20100730
  Receipt Date: 20100722
  Transmission Date: 20110219
  Serious: Yes (Hospitalization)
  Sender: FDA-Public Use
  Company Number: US-SANOFI-AVENTIS-2010SA032844

PATIENT
  Age: 87 Year
  Sex: Female
  Weight: 54.54 kg

DRUGS (11)
  1. MULTAQ [Suspect]
     Indication: ATRIAL FIBRILLATION
     Route: 048
     Dates: start: 20100501, end: 20100601
  2. MULTAQ [Suspect]
     Route: 048
     Dates: start: 20100601, end: 20100611
  3. DIGOXIN [Suspect]
     Indication: CARDIAC DISORDER
     Dates: start: 20060101, end: 20100501
  4. DIGOXIN [Suspect]
     Dates: start: 20100601
  5. COUMADIN [Suspect]
     Indication: CARDIAC DISORDER
     Dates: start: 20060101
  6. SPIRONOLACTONE [Concomitant]
     Indication: CARDIAC DISORDER
     Dates: start: 20060101
  7. SPIRONOLACTONE [Concomitant]
     Indication: ATRIAL FIBRILLATION
     Dates: start: 20060101
  8. METOPROLOL TARTRATE [Concomitant]
     Indication: CARDIAC DISORDER
     Dates: start: 20060101, end: 20100501
  9. METOPROLOL TARTRATE [Concomitant]
     Dates: start: 20100601
  10. LEVOXYL [Concomitant]
     Indication: THYROID DISORDER
     Dates: start: 20060101
  11. LOVASTATIN [Concomitant]
     Indication: CARDIAC DISORDER
     Dates: start: 20060101

REACTIONS (8)
  - ASTHENIA [None]
  - BLOOD PRESSURE DECREASED [None]
  - BLOOD PRESSURE INCREASED [None]
  - CONTUSION [None]
  - DIZZINESS [None]
  - DRUG INTERACTION [None]
  - INCORRECT DOSE ADMINISTERED [None]
  - MALAISE [None]
